FAERS Safety Report 18635915 (Version 4)
Quarter: 2021Q4

REPORT INFORMATION
  Report Type: Spontaneous
  Country: ES (occurrence: ES)
  Receive Date: 20201218
  Receipt Date: 20211125
  Transmission Date: 20220303
  Serious: Yes (Hospitalization, Other)
  Sender: FDA-Public Use
  Company Number: ES-MLMSERVICE-20201207-2614145-1

PATIENT
  Age: 67 Year
  Sex: Male

DRUGS (4)
  1. OXALIPLATIN [Suspect]
     Active Substance: OXALIPLATIN
     Indication: Colon cancer metastatic
     Dosage: UNK, (1 CYCLIC)
     Dates: start: 201905, end: 201905
  2. OXALIPLATIN [Suspect]
     Active Substance: OXALIPLATIN
     Dosage: 50 ML (274 MG) DOSE INFUSION (1 CYCLICAL)
     Dates: start: 201906, end: 201906
  3. OXALIPLATIN [Suspect]
     Active Substance: OXALIPLATIN
     Dosage: 154 MG (DOSE INFUSION), CYCLIC
     Dates: start: 201907, end: 201907
  4. OXALIPLATIN [Suspect]
     Active Substance: OXALIPLATIN
     Dosage: UNK, CYCLIC REDUCED TO 75% OF TOTAL DOSE INFUSION
     Dates: start: 2019, end: 2019

REACTIONS (2)
  - Cytokine release syndrome [Recovered/Resolved]
  - Type I hypersensitivity [Recovered/Resolved]

NARRATIVE: CASE EVENT DATE: 20190601
